FAERS Safety Report 14306348 (Version 2)
Quarter: 2018Q1

REPORT INFORMATION
  Report Type: Report from Study
  Country: None (occurrence: CO)
  Receive Date: 20171219
  Receipt Date: 20180117
  Transmission Date: 20180509
  Serious: Yes (Disabling)
  Sender: FDA-Public Use
  Company Number: CO-ABBVIE-17K-036-2198695-00

PATIENT
  Age: 30 Year
  Sex: Female
  Weight: 55 kg

DRUGS (1)
  1. HUMIRA [Suspect]
     Active Substance: ADALIMUMAB
     Indication: ANKYLOSING SPONDYLITIS
     Route: 058
     Dates: start: 20151016, end: 20171201

REACTIONS (1)
  - Vocal cord paresis [Not Recovered/Not Resolved]

NARRATIVE: CASE EVENT DATE: 201603
